FAERS Safety Report 6806992-5 (Version None)
Quarter: 2010Q2

REPORT INFORMATION
  Report Type: 
  Country: None (occurrence: None)
  Receive Date: 20100629
  Receipt Date: 20080710
  Transmission Date: 20101027
  Serious: Yes (Other)
  Sender: FDA-Public Use
  Company Number: US-PFIZER INC-2008052204

PATIENT
  Age: 70 Year
  Sex: Male

DRUGS (2)
  1. ZYVOX [Suspect]
     Indication: SKIN INFECTION
     Dates: start: 20080101
  2. LEXAPRO [Suspect]

REACTIONS (4)
  - MENTAL STATUS CHANGES [None]
  - MUSCLE RIGIDITY [None]
  - PYREXIA [None]
  - SEROTONIN SYNDROME [None]
